FAERS Safety Report 22040674 (Version 1)
Quarter: 2023Q1

REPORT INFORMATION
  Report Type: Spontaneous
  Country: SE (occurrence: SE)
  Receive Date: 20230227
  Receipt Date: 20230227
  Transmission Date: 20230418
  Serious: Yes (Hospitalization)
  Sender: FDA-Public Use
  Company Number: None

PATIENT
  Age: 70 Year
  Sex: Female

DRUGS (1)
  1. PREDNISOLONE [Suspect]
     Active Substance: PREDNISOLONE
     Indication: Pneumonitis
     Route: 065
     Dates: start: 20220719, end: 20220807

REACTIONS (1)
  - Acute psychosis [Recovered/Resolved]

NARRATIVE: CASE EVENT DATE: 20220801
